FAERS Safety Report 7357033-5 (Version None)
Quarter: 2011Q1

REPORT INFORMATION
  Report Type: 
  Country: None (occurrence: None)
  Receive Date: 20110310
  Receipt Date: 20110310
  Transmission Date: 20110831
  Serious: Yes (Hospitalization)
  Sender: FDA-Public Use
  Company Number: None

PATIENT
  Age: 61 Year
  Sex: Female
  Weight: 51.2565 kg

DRUGS (2)
  1. ALENDRONATE SODIUM [Suspect]
     Indication: OSTEOPENIA
     Dosage: 1 PILL WEEKLY PO
     Route: 048
     Dates: start: 20090301, end: 20100701
  2. FOSAMAX [Suspect]
     Indication: OSTEOPENIA
     Dosage: 1 PILL WEEKLY PO
     Route: 048
     Dates: start: 20050201, end: 20090301

REACTIONS (4)
  - OSTEOPENIA [None]
  - FEMUR FRACTURE [None]
  - OEDEMA PERIPHERAL [None]
  - FALL [None]
